FAERS Safety Report 23164514 (Version 4)
Quarter: 2024Q1

REPORT INFORMATION
  Report Type: Spontaneous
  Country: TR (occurrence: TR)
  Receive Date: 20231109
  Receipt Date: 20240102
  Transmission Date: 20240410
  Serious: No
  Sender: FDA-Public Use
  Company Number: TR-PFIZER INC-PV202300173885

PATIENT

DRUGS (1)
  1. ENBREL [Suspect]
     Active Substance: ETANERCEPT
     Indication: Juvenile idiopathic arthritis
     Dosage: UNK, WEEKLY
     Route: 058

REACTIONS (2)
  - Nausea [Recovered/Resolved]
  - Injection site pain [Recovered/Resolved]
